FAERS Safety Report 4488097-4 (Version None)
Quarter: 2004Q4

REPORT INFORMATION
  Report Type: 
  Country: None (occurrence: None)
  Receive Date: 20041028
  Receipt Date: 20040916
  Transmission Date: 20050328
  Serious: Yes (Other)
  Sender: FDA-Public Use
  Company Number: DE-GLAXOSMITHKLINE-D0044699A

PATIENT
  Age: 63 Year
  Sex: Male
  Weight: 175 kg

DRUGS (8)
  1. AVODART [Suspect]
     Dosage: 1TAB PER DAY
     Route: 048
     Dates: start: 20040910, end: 20041015
  2. DIABESIN [Concomitant]
     Dosage: 1TAB TWICE PER DAY
     Route: 048
  3. AMARYL [Concomitant]
     Dosage: 2MG PER DAY
     Route: 048
  4. ISOPTIN [Concomitant]
     Indication: HYPERTONIA
     Dosage: .5TAB PER DAY
     Route: 048
     Dates: start: 19990101
  5. MAGNESIUM (UNSPECIFIED) [Concomitant]
     Route: 048
  6. ALPHA BLOCKER [Concomitant]
     Route: 065
  7. URION [Concomitant]
     Dosage: 1UD PER DAY
     Route: 065
     Dates: start: 20040301
  8. DYNORM [Concomitant]
     Indication: HYPERTONIA
     Dosage: .5UD PER DAY
     Route: 048
     Dates: start: 19990101

REACTIONS (4)
  - ARRHYTHMIA [None]
  - ATRIOVENTRICULAR BLOCK FIRST DEGREE [None]
  - BRADYCARDIA [None]
  - CHEST DISCOMFORT [None]
